FAERS Safety Report 8464632 (Version 2)
Quarter: 2013Q2

REPORT INFORMATION
  Report Type: Spontaneous
  Country: US (occurrence: None)
  Receive Date: 20120227
  Receipt Date: 20120525
  Transmission Date: 20140414
  Serious: No
  Sender: FDA-Public Use
  Company Number: 343471

PATIENT
  Age: 58 Year
  Sex: Male

DRUGS (1)
  1. VICTOZA [Suspect]
     Indication: TYPE 2 DIABETES MELLITUS
     Dosage: SUBCUTANEOUS
     Route: 058
     Dates: start: 20111208

REACTIONS (3)
  - INJECTION SITE IRRITATION [None]
  - INJECTION SITE PRURITUS [None]
  - Injection site induration [None]
